FAERS Safety Report 4867083-6 (Version None)
Quarter: 2005Q4

REPORT INFORMATION
  Report Type: 
  Country: None (occurrence: None)
  Receive Date: 20051222
  Receipt Date: 20051209
  Transmission Date: 20060501
  Serious: Yes (Hospitalization)
  Sender: FDA-Public Use
  Company Number: DSA_27566_2005

PATIENT
  Age: 48 Year
  Sex: Female

DRUGS (5)
  1. DILTIAZEM HCL [Suspect]
     Indication: HYPERTENSION
     Dosage: 100 MG Q DAY PO
     Route: 048
     Dates: start: 20030904, end: 20030922
  2. BOFU-TSUSHO-SAN [Concomitant]
  3. KAKKON-TO [Concomitant]
  4. LOXONIN [Concomitant]
  5. KETOPROFEN [Concomitant]

REACTIONS (1)
  - LIVER DISORDER [None]
